FAERS Safety Report 20047761 (Version 6)
Quarter: 2022Q3

REPORT INFORMATION
  Report Type: Report from Study
  Country: US (occurrence: US)
  Receive Date: 20211109
  Receipt Date: 20220718
  Transmission Date: 20221027
  Serious: No
  Sender: FDA-Public Use
  Company Number: US-NOVARTISTESTPH-NVSC2021US254748

PATIENT
  Age: 64 Year
  Sex: Male

DRUGS (1)
  1. ENTRESTO [Suspect]
     Active Substance: SACUBITRIL\VALSARTAN
     Indication: Product used for unknown indication
     Dosage: 1 DOSAGE FORM, BID
     Route: 048

REACTIONS (10)
  - Tendon rupture [Recovering/Resolving]
  - Gait disturbance [Recovering/Resolving]
  - Dysgeusia [Unknown]
  - Influenza like illness [Recovering/Resolving]
  - SARS-CoV-2 test positive [Recovering/Resolving]
  - Throat clearing [Unknown]
  - Weight increased [Unknown]
  - Weight decreased [Unknown]
  - Hyperhidrosis [Recovering/Resolving]
  - Cough [Unknown]

NARRATIVE: CASE EVENT DATE: 20220502
